FAERS Safety Report 7030296-1 (Version None)
Quarter: 2010Q4

REPORT INFORMATION
  Report Type: 
  Country: None (occurrence: None)
  Receive Date: 20101006
  Receipt Date: 20100923
  Transmission Date: 20110411
  Serious: Yes (Hospitalization)
  Sender: FDA-Public Use
  Company Number: US-ELI_LILLY_AND_COMPANY-US201009007001

PATIENT
  Age: 48 Year
  Sex: Male

DRUGS (3)
  1. ZYPREXA RELPREVV [Suspect]
     Indication: PSYCHOTIC DISORDER
     Dosage: 300 MG, MONTHLY (1/M)
     Route: 030
  2. NEURONTIN [Concomitant]
     Dosage: 800 MG, 3/D
  3. COGENTIN [Concomitant]
     Dosage: 1 MG, 2/D

REACTIONS (1)
  - PANIC ATTACK [None]
